FAERS Safety Report 6086267-5 (Version None)
Quarter: 2009Q1

REPORT INFORMATION
  Report Type: 
  Country: None (occurrence: None)
  Receive Date: 20090220
  Receipt Date: 20090211
  Transmission Date: 20090719
  Serious: Yes (Hospitalization, Disabling, Other)
  Sender: FDA-Public Use
  Company Number: US-B.I. PHARMACEUTICALS,INC./RIDGEFIELD-2009-BP-01772BP

PATIENT
  Age: 72 Year
  Sex: Male

DRUGS (4)
  1. FLOMAX [Suspect]
     Indication: DYSURIA
     Dosage: .4MG
     Route: 048
     Dates: start: 20060101, end: 20081001
  2. PLAVIX [Concomitant]
     Indication: CARDIAC DISORDER
  3. METOPROLOL TARTRATE [Concomitant]
     Indication: CARDIAC DISORDER
  4. ASPIRIN [Concomitant]
     Indication: CARDIAC DISORDER

REACTIONS (3)
  - CORONARY ARTERY OCCLUSION [None]
  - DYSPHAGIA [None]
  - TONGUE NEOPLASM MALIGNANT STAGE UNSPECIFIED [None]
